FAERS Safety Report 20842806 (Version 2)
Quarter: 2022Q2

REPORT INFORMATION
  Report Type: Spontaneous
  Country: US (occurrence: US)
  Receive Date: 20220518
  Receipt Date: 20220613
  Transmission Date: 20220720
  Serious: Yes (Other)
  Sender: FDA-Public Use
  Company Number: US-ORPHANEU-2022001894

PATIENT

DRUGS (6)
  1. ISTURISA [Suspect]
     Active Substance: OSILODROSTAT PHOSPHATE
     Indication: Cushing^s syndrome
     Dosage: 2 TABLETS TWO TIMES PER DAY
     Route: 048
     Dates: start: 20220414
  2. ISTURISA [Suspect]
     Active Substance: OSILODROSTAT PHOSPHATE
     Indication: Off label use
     Dosage: 3 MILLIGRAM, BID
     Route: 048
     Dates: start: 2022, end: 2022
  3. NP THYROID [Concomitant]
     Active Substance: LEVOTHYROXINE\LIOTHYRONINE
     Indication: Hypothyroidism
     Dosage: 60 MILLIGRAM IN THE AFTERNOON AND 90 MG IN THE MORNING
  4. NP THYROID [Concomitant]
     Active Substance: LEVOTHYROXINE\LIOTHYRONINE
     Dosage: 60 MILLIGRAM AND 90 MG IN THE EVENING
  5. VITAMIN D NOS [Concomitant]
     Active Substance: VITAMIN D NOS
     Indication: Vitamin D deficiency
     Dosage: UNK, QD
  6. HYDROCORTISONE [Concomitant]
     Active Substance: HYDROCORTISONE
     Indication: Cortisol decreased
     Dosage: 5 MILLIGRAM, PRN
     Dates: end: 20220502

REACTIONS (13)
  - Diabetes insipidus [Not Recovered/Not Resolved]
  - Polyuria [Not Recovered/Not Resolved]
  - Thirst [Not Recovered/Not Resolved]
  - Nasopharyngitis [Unknown]
  - Cough [Unknown]
  - Pain [Unknown]
  - Insomnia [Unknown]
  - Skin swelling [Unknown]
  - Nausea [Recovered/Resolved]
  - Headache [Unknown]
  - Blood pressure decreased [Unknown]
  - Off label use [Recovered/Resolved]
  - Product dose omission issue [Recovered/Resolved]

NARRATIVE: CASE EVENT DATE: 20220101
